FAERS Safety Report 13118492 (Version 2)
Quarter: 2017Q1

REPORT INFORMATION
  Report Type: Report from Study
  Country: US (occurrence: US)
  Receive Date: 20170116
  Receipt Date: 20170126
  Transmission Date: 20170428
  Serious: Yes (Hospitalization, Other)
  Sender: FDA-Public Use
  Company Number: US-GILEAD-2017-0252715

PATIENT
  Age: 28 Year
  Sex: Female

DRUGS (3)
  1. ADEMPAS [Concomitant]
     Active Substance: RIOCIGUAT
  2. AMBRISENTAN [Suspect]
     Active Substance: AMBRISENTAN
     Indication: PRODUCT USED FOR UNKNOWN INDICATION
     Dosage: 10 MG, QD
     Route: 065
     Dates: start: 20090108
  3. REMODULIN [Concomitant]
     Active Substance: TREPROSTINIL

REACTIONS (7)
  - Lymphadenitis [Unknown]
  - Pharyngitis streptococcal [Unknown]
  - Device dislocation [Unknown]
  - Central venous catheterisation [Unknown]
  - Pyrexia [Unknown]
  - Nephrolithiasis [Unknown]
  - Fluid retention [Unknown]

NARRATIVE: CASE EVENT DATE: 20170116
